FAERS Safety Report 6679168-2 (Version None)
Quarter: 2010Q2

REPORT INFORMATION
  Report Type: 
  Country: None (occurrence: None)
  Receive Date: 20100413
  Receipt Date: 20091218
  Transmission Date: 20101027
  Serious: Yes (Hospitalization)
  Sender: FDA-Public Use
  Company Number: NSADSS2002017099

PATIENT
  Age: 81 Year
  Sex: Female

DRUGS (2)
  1. LEVOFLOXACIN [Suspect]
     Indication: URINARY TRACT INFECTION
     Route: 048
     Dates: start: 20020321, end: 20020323
  2. DILTIAZEM HCL [Suspect]
     Indication: CARDIAC DISORDER
     Route: 065

REACTIONS (3)
  - BRADYCARDIA [None]
  - ELECTROCARDIOGRAM CHANGE [None]
  - SYNCOPE [None]
